FAERS Safety Report 12698685 (Version 1)
Quarter: 2016Q3

REPORT INFORMATION
  Report Type: Spontaneous
  Country: US (occurrence: US)
  Receive Date: 20160830
  Receipt Date: 20160830
  Transmission Date: 20161109
  Serious: No
  Sender: FDA-Public Use
  Company Number: US-PERRIGO-16US014108

PATIENT
  Age: 43 Year
  Sex: Female
  Weight: 59.86 kg

DRUGS (3)
  1. ZANTAC [Concomitant]
     Active Substance: RANITIDINE HYDROCHLORIDE
     Indication: GASTROOESOPHAGEAL REFLUX DISEASE
     Dosage: UNK
     Route: 065
     Dates: start: 201510
  2. EVAMIST [Suspect]
     Active Substance: ESTRADIOL
     Indication: MOOD SWINGS
     Dosage: 1.53 MG, QD
     Route: 062
     Dates: start: 201509, end: 201511
  3. EVAMIST [Suspect]
     Active Substance: ESTRADIOL
     Dosage: 3.06 MG, QD
     Route: 062
     Dates: start: 201511

REACTIONS (3)
  - Anxiety [Not Recovered/Not Resolved]
  - Off label use [Not Recovered/Not Resolved]
  - Drug administered at inappropriate site [Not Recovered/Not Resolved]

NARRATIVE: CASE EVENT DATE: 201509
